FAERS Safety Report 4866140-8 (Version None)
Quarter: 2005Q4

REPORT INFORMATION
  Report Type: 
  Country: None (occurrence: None)
  Receive Date: 20051227
  Receipt Date: 20051221
  Transmission Date: 20060501
  Serious: Yes (Other)
  Sender: FDA-Public Use
  Company Number: PHEH2005US13810

PATIENT
  Age: 39 Year
  Sex: Female

DRUGS (4)
  1. RITALIN [Suspect]
     Indication: NARCOLEPSY
     Dosage: 80 MG, QD
     Route: 048
     Dates: start: 19970101, end: 20051101
  2. ADDERALL 10 [Suspect]
     Indication: NARCOLEPSY
     Dosage: 40 MG, QD
     Route: 048
     Dates: start: 19970101, end: 20051101
  3. KLONOPIN [Concomitant]
     Indication: NARCOLEPSY
     Dosage: 4 MG, QD
     Dates: start: 20020101
  4. REMERON [Suspect]
     Indication: SLEEP DISORDER
     Dosage: 30 MG, QD
     Dates: start: 20020101

REACTIONS (7)
  - CARTILAGE INJURY [None]
  - COMPLEX REGIONAL PAIN SYNDROME [None]
  - CONVULSION [None]
  - IATROGENIC INJURY [None]
  - KNEE OPERATION [None]
  - NARCOLEPSY [None]
  - NERVE INJURY [None]
